FAERS Safety Report 13719963 (Version 2)
Quarter: 2017Q3

REPORT INFORMATION
  Report Type: Spontaneous
  Country: PL (occurrence: PL)
  Receive Date: 20170705
  Receipt Date: 20170710
  Transmission Date: 20171127
  Serious: Yes (Hospitalization)
  Sender: FDA-Public Use
  Company Number: PL-MEDA-2017060080

PATIENT
  Age: 62 Year
  Sex: Female

DRUGS (4)
  1. MOKLAR [Suspect]
     Active Substance: MOCLOBEMIDE
     Indication: DEPRESSION
     Dosage: 1 DF DOSAGE FORM EVERY DAYS
  2. VENLAFAXINE [Suspect]
     Active Substance: VENLAFAXINE HYDROCHLORIDE
     Indication: DEPRESSION
  3. ZOLPIDEM [Suspect]
     Active Substance: ZOLPIDEM\ZOLPIDEM TARTRATE
     Indication: INSOMNIA
     Dosage: 10 MG BEFORE A SLEEP
  4. SERTRALINE [Suspect]
     Active Substance: SERTRALINE HYDROCHLORIDE
     Indication: DEPRESSION
     Dosage: 50 MG

REACTIONS (5)
  - Electrocardiogram QT prolonged [Unknown]
  - Syncope [Unknown]
  - Drug interaction [Unknown]
  - Palpitations [Unknown]
  - Fatigue [Unknown]
